FAERS Safety Report 7426625-7 (Version None)
Quarter: 2011Q2

REPORT INFORMATION
  Report Type: 
  Country: None (occurrence: None)
  Receive Date: 20110420
  Receipt Date: 20110412
  Transmission Date: 20111010
  Serious: Yes (Death, Hospitalization, Other)
  Sender: FDA-Public Use
  Company Number: KR-JNJFOC-20110406250

PATIENT
  Age: 6 Year
  Sex: Male

DRUGS (6)
  1. ITRACONAZOLE [Suspect]
     Indication: ASPERGILLOSIS
     Route: 065
  2. ITRACONAZOLE [Suspect]
     Route: 065
  3. GM CSF [Suspect]
     Indication: ASPERGILLOSIS
     Route: 065
  4. AMPHOTERICIN B [Suspect]
     Indication: ASPERGILLOSIS
     Route: 065
  5. AMPHOTERICIN B [Suspect]
     Route: 065
  6. INTERFERON [Suspect]
     Indication: ASPERGILLOSIS
     Route: 065

REACTIONS (2)
  - DRUG INEFFECTIVE [None]
  - DISEASE PROGRESSION [None]
